FAERS Safety Report 17560204 (Version 1)
Quarter: 2020Q1

REPORT INFORMATION
  Report Type: Spontaneous
  Country: US (occurrence: US)
  Receive Date: 20200312
  Receipt Date: 20200312
  Transmission Date: 20200409
  Serious: No
  Sender: FDA-Public Use
  Company Number: None

PATIENT
  Age: 56 Year
  Sex: Female

DRUGS (1)
  1. ZOLEDRON ACID SDV 5MG/100ML [Suspect]
     Active Substance: ZOLEDRONIC ACID
     Indication: BONE DENSITY ABNORMAL
     Dosage: ?          OTHER FREQUENCY:OTHER;?
     Route: 042
     Dates: start: 202003

REACTIONS (1)
  - Inappropriate schedule of product administration [None]

NARRATIVE: CASE EVENT DATE: 20200312
